FAERS Safety Report 13240052 (Version 1)
Quarter: 2017Q1

REPORT INFORMATION
  Report Type: Spontaneous
  Country: US (occurrence: US)
  Receive Date: 20170216
  Receipt Date: 20170216
  Transmission Date: 20170428
  Serious: No
  Sender: FDA-Public Use
  Company Number: US-GLAXOSMITHKLINE-US2017020692

PATIENT
  Age: 53 Year
  Sex: Female

DRUGS (1)
  1. FLONASE [Suspect]
     Active Substance: FLUTICASONE PROPIONATE
     Indication: SINUS CONGESTION
     Dosage: UNK (USED THE PRODUCT ONCE )
     Dates: start: 201611, end: 201611

REACTIONS (4)
  - Product use issue [Unknown]
  - Sinusitis [Unknown]
  - Condition aggravated [Unknown]
  - Sinus congestion [Unknown]
